FAERS Safety Report 11728223 (Version 1)
Quarter: 2015Q4

REPORT INFORMATION
  Report Type: Spontaneous
  Country: US (occurrence: US)
  Receive Date: 20151110
  Receipt Date: 20151110
  Transmission Date: 20160304
  Serious: No
  Sender: FDA-Public Use
  Company Number: US-ELI_LILLY_AND_COMPANY-US201109007595

PATIENT
  Age: 88 Year
  Sex: Female

DRUGS (4)
  1. FORTEO [Suspect]
     Active Substance: TERIPARATIDE
     Indication: OSTEOPOROSIS
     Dosage: 20 UG, QD
     Dates: start: 20110922
  2. FORTEO [Suspect]
     Active Substance: TERIPARATIDE
     Dosage: 20 UG, QD
     Route: 065
  3. FORTEO [Suspect]
     Active Substance: TERIPARATIDE
     Dosage: 20 UG, QD
     Dates: end: 20111013
  4. FORTEO [Suspect]
     Active Substance: TERIPARATIDE
     Dosage: 20 UG, QD

REACTIONS (10)
  - Musculoskeletal discomfort [Unknown]
  - Musculoskeletal discomfort [Recovering/Resolving]
  - Nausea [Recovered/Resolved]
  - Heart rate increased [Not Recovered/Not Resolved]
  - Constipation [Recovering/Resolving]
  - Hypertension [Not Recovered/Not Resolved]
  - Nausea [Recovering/Resolving]
  - Hearing impaired [Unknown]
  - Posture abnormal [Recovering/Resolving]
  - Limb discomfort [Recovering/Resolving]

NARRATIVE: CASE EVENT DATE: 20110922
